FAERS Safety Report 8978514 (Version 1)
Quarter: 2012Q4

REPORT INFORMATION
  Report Type: Report from Study
  Country: NL (occurrence: NL)
  Receive Date: 20121220
  Receipt Date: 20121220
  Transmission Date: 20130627
  Serious: Yes (Death, Life-Threatening, Hospitalization)
  Sender: FDA-Public Use
  Company Number: NL-BAXTER-2012BAX027134

PATIENT
  Age: 58 Year
  Sex: Female
  Weight: 90 kg

DRUGS (4)
  1. ENDOXAN I.V., POEDER VOOR OPLOSSING VOOR INJECTIE 200, 500, 1000 MG [Suspect]
     Indication: B-CELL LYMPHOMA
     Route: 042
     Dates: start: 20100131
  2. RITUXIMAB [Suspect]
     Indication: B-CELL LYMPHOMA
     Route: 065
  3. IBUPROFEN [Suspect]
     Indication: B-CELL LYMPHOMA
     Route: 048
     Dates: start: 20100126
  4. PHENYTOIN [Suspect]
     Indication: B-CELL LYMPHOMA
     Route: 048
     Dates: start: 20100125

REACTIONS (3)
  - Pneumonia [Fatal]
  - Gastrointestinal perforation [Not Recovered/Not Resolved]
  - Device related sepsis [Recovered/Resolved]
